FAERS Safety Report 14713005 (Version 2)
Quarter: 2018Q2

REPORT INFORMATION
  Report Type: Spontaneous
  Country: US (occurrence: US)
  Receive Date: 20180404
  Receipt Date: 20180507
  Transmission Date: 20180711
  Serious: No
  Sender: FDA-Public Use
  Company Number: US-UNITED THERAPEUTICS-UNT-2018-004380

PATIENT
  Sex: Male

DRUGS (2)
  1. REMODULIN [Suspect]
     Active Substance: TREPROSTINIL
     Indication: PULMONARY ARTERIAL HYPERTENSION
     Dosage: 0.213 ?G/KG, CONTINUING
     Route: 041
     Dates: start: 20120120
  2. REMODULIN [Suspect]
     Active Substance: TREPROSTINIL
     Dosage: 0.210 ?G/KG, CONTINUING
     Route: 041

REACTIONS (4)
  - Hypokalaemia [Unknown]
  - Hypotension [Unknown]
  - Diarrhoea [Unknown]
  - Dehydration [Unknown]

NARRATIVE: CASE EVENT DATE: 20180328
